FAERS Safety Report 9941783 (Version 1)
Quarter: 2014Q1

REPORT INFORMATION
  Report Type: Report from Study
  Country: US (occurrence: US)
  Receive Date: 20140303
  Receipt Date: 20140303
  Transmission Date: 20141002
  Serious: No
  Sender: FDA-Public Use
  Company Number: US-ABBVIE-13P-163-1040331-00

PATIENT
  Age: 18 Year
  Sex: Male

DRUGS (2)
  1. HUMIRA [Suspect]
     Indication: CROHN^S DISEASE
     Route: 058
     Dates: start: 20110806
  2. UNKNOWN MEDICATION [Concomitant]
     Indication: ANXIETY
     Dates: start: 201210

REACTIONS (2)
  - Drug dose omission [Unknown]
  - Anxiety [Unknown]
